FAERS Safety Report 6978693-4 (Version None)
Quarter: 2010Q3

REPORT INFORMATION
  Report Type: 
  Country: None (occurrence: None)
  Receive Date: 20100913
  Receipt Date: 20100904
  Transmission Date: 20110219
  Serious: Yes (Other)
  Sender: FDA-Public Use
  Company Number: A0880568A

PATIENT
  Sex: Male

DRUGS (1)
  1. SERETIDE [Suspect]
     Indication: ASTHMA
     Dosage: 2PUFF TWICE PER DAY
     Route: 055
     Dates: start: 20100803

REACTIONS (4)
  - ASTHMA [None]
  - DRUG INEFFECTIVE [None]
  - OVERDOSE [None]
  - PRODUCT QUALITY ISSUE [None]
